FAERS Safety Report 8576289 (Version 4)
Quarter: 2013Q4

REPORT INFORMATION
  Report Type: Spontaneous
  Country: US (occurrence: US)
  Receive Date: 20120523
  Receipt Date: 20131106
  Transmission Date: 20140711
  Serious: Yes (Hospitalization, Disabling, Other)
  Sender: FDA-Public Use
  Company Number: US-009507513-1205USA03112

PATIENT
  Age: 74 Year
  Sex: Male
  Weight: 97.52 kg

DRUGS (9)
  1. JANUVIA [Suspect]
     Indication: TYPE 2 DIABETES MELLITUS
     Dosage: UNK
     Route: 048
     Dates: start: 20110805, end: 201201
  2. JANUVIA [Suspect]
     Dosage: 100 MG, QD
     Route: 048
     Dates: start: 20120312, end: 20120512
  3. GLUCOVANCE [Concomitant]
     Dosage: UNK
  4. ASPIRIN [Concomitant]
     Dosage: 325 MG, QD
  5. PRINIVIL [Suspect]
     Dosage: 20 MG, QD
     Route: 048
  6. ATIVAN [Concomitant]
     Indication: ANXIETY
     Dosage: 0.5 MG, Q6H
  7. MEVACOR TABLET [Suspect]
     Dosage: 20 MG, QD
     Route: 048
  8. PRILOSEC [Suspect]
     Route: 048
  9. ATENOLOL [Concomitant]
     Dosage: 50 MG, QD

REACTIONS (16)
  - Pancreatitis [Recovering/Resolving]
  - Pancreatic mass [Recovering/Resolving]
  - Abdominal mass [Unknown]
  - Pseudocyst [Unknown]
  - Diabetes mellitus [Not Recovered/Not Resolved]
  - Treatment noncompliance [Unknown]
  - Cholelithiasis [Unknown]
  - Blood urea increased [Recovered/Resolved]
  - Haemoglobin decreased [Not Recovered/Not Resolved]
  - Haematocrit decreased [Not Recovered/Not Resolved]
  - Hepatic steatosis [Unknown]
  - Pleural effusion [Unknown]
  - Atelectasis [Unknown]
  - Aortic arteriosclerosis [Unknown]
  - Pericardial effusion [Unknown]
  - Prostatomegaly [Unknown]
